FAERS Safety Report 15769898 (Version 3)
Quarter: 2020Q3

REPORT INFORMATION
  Report Type: Spontaneous
  Country: US (occurrence: US)
  Receive Date: 20181228
  Receipt Date: 20200828
  Transmission Date: 20201102
  Serious: No
  Sender: FDA-Public Use
  Company Number: US-009507513-1812USA005609

PATIENT
  Sex: Female
  Weight: 49.89 kg

DRUGS (2)
  1. FOLLISTIM AQ [Suspect]
     Active Substance: FOLLITROPIN
     Dosage: 300 INTERNATIONAL UNIT, QD
     Dates: start: 20181019, end: 20181024
  2. GONAL?F [Suspect]
     Active Substance: FOLLITROPIN
     Dosage: UNK

REACTIONS (7)
  - Product contamination [Unknown]
  - Poor quality product administered [Unknown]
  - Incorrect dose administered [Unknown]
  - Product packaging quantity issue [Unknown]
  - Wrong technique in product usage process [Unknown]
  - Polyp [Unknown]
  - Product tampering [Unknown]

NARRATIVE: CASE EVENT DATE: 20181018
